FAERS Safety Report 25993638 (Version 1)
Quarter: 2025Q4

REPORT INFORMATION
  Report Type: Spontaneous
  Country: TR (occurrence: TR)
  Receive Date: 20251104
  Receipt Date: 20251104
  Transmission Date: 20260118
  Serious: Yes (Hospitalization, Other)
  Sender: STRIDES
  Company Number: TR-STRIDES ARCOLAB LIMITED-2025SP013632

PATIENT
  Age: 39 Year
  Sex: Male

DRUGS (9)
  1. TOPIRAMATE [Interacting]
     Active Substance: TOPIRAMATE
     Indication: Generalised tonic-clonic seizure
     Dosage: 100 MILLIGRAMS, QD
     Route: 065
  2. VALPROIC ACID [Interacting]
     Active Substance: VALPROIC ACID
     Indication: Status epilepticus
     Dosage: 20 MILLIGRAM/KILOGRAM, LOADING DOSE
     Route: 042
  3. VALPROIC ACID [Interacting]
     Active Substance: VALPROIC ACID
     Dosage: 500 MILLIGRAMS, BID MAINTENANCE DOSE
     Route: 048
  4. CARBAMAZEPINE [Concomitant]
     Active Substance: CARBAMAZEPINE
     Indication: Generalised tonic-clonic seizure
     Dosage: UNK
     Route: 065
  5. CARBAMAZEPINE [Concomitant]
     Active Substance: CARBAMAZEPINE
     Dosage: 1200 MILLIGRAM, QD
     Route: 065
  6. LEVETIRACETAM [Concomitant]
     Active Substance: LEVETIRACETAM
     Indication: Generalised tonic-clonic seizure
     Dosage: UNK UNK, QD
     Route: 065
  7. LEVETIRACETAM [Concomitant]
     Active Substance: LEVETIRACETAM
     Dosage: 3000 MILLIGRAM, QD
     Route: 065
  8. ASPIRIN [Concomitant]
     Active Substance: ASPIRIN
     Indication: Product used for unknown indication
     Dosage: 100 MILLIGRAMS, QD
     Route: 065
  9. LACOSAMIDE [Concomitant]
     Active Substance: LACOSAMIDE
     Indication: Generalised tonic-clonic seizure
     Dosage: 600 MILLIGRAMS, QD
     Route: 065

REACTIONS (3)
  - Metabolic encephalopathy [Recovered/Resolved]
  - Drug interaction [Unknown]
  - Dystonic tremor [Not Recovered/Not Resolved]
